FAERS Safety Report 16305243 (Version 1)
Quarter: 2019Q2

REPORT INFORMATION
  Report Type: Spontaneous
  Country: ES (occurrence: ES)
  Receive Date: 20190513
  Receipt Date: 20190513
  Transmission Date: 20190711
  Serious: Yes (Death, Hospitalization)
  Sender: FDA-Public Use
  Company Number: ES-ROCHE-2316648

PATIENT
  Age: 39 Year
  Sex: Female

DRUGS (2)
  1. DEFLAZACORT [Suspect]
     Active Substance: DEFLAZACORT
     Indication: RHEUMATOID ARTHRITIS
     Route: 065
  2. TOCILIZUMAB. [Suspect]
     Active Substance: TOCILIZUMAB
     Indication: RHEUMATOID ARTHRITIS
     Dosage: BIMONTHLY FOR 1 YEAR
     Route: 065

REACTIONS (3)
  - Systemic inflammatory response syndrome [Fatal]
  - Blister [Fatal]
  - Necrotising myositis [Fatal]
